FAERS Safety Report 23357906 (Version 1)
Quarter: 2024Q1

REPORT INFORMATION
  Report Type: Spontaneous
  Country: US (occurrence: US)
  Receive Date: 20240102
  Receipt Date: 20240102
  Transmission Date: 20240409
  Serious: No
  Sender: FDA-Public Use
  Company Number: US-Eisai Medical Research-EC-2023-149039

PATIENT
  Age: 76 Year
  Sex: Male

DRUGS (6)
  1. LEQEMBI [Suspect]
     Active Substance: LECANEMAB-IRMB
     Indication: Dementia Alzheimer^s type
     Dosage: DOSE UNKNOWN
     Route: 042
     Dates: start: 202303, end: 20230920
  2. LEQEMBI [Suspect]
     Active Substance: LECANEMAB-IRMB
     Dosage: DOSE UNKNOWN
     Route: 042
     Dates: start: 20230920
  3. LOSARTAN [Suspect]
     Active Substance: LOSARTAN
     Indication: Blood pressure abnormal
     Dosage: DOSE AND FREQUENCY UNKNOWN
     Route: 065
     Dates: end: 2023
  4. ZOLOFT [Suspect]
     Active Substance: SERTRALINE HYDROCHLORIDE
     Indication: Depression
     Dosage: DOSE AND FREQUENCY UNKNOWN
     Route: 065
     Dates: end: 2023
  5. LEVOTHYROXINE [Concomitant]
     Active Substance: LEVOTHYROXINE
  6. CALCIUM [Concomitant]
     Active Substance: CALCIUM

REACTIONS (2)
  - Hepatic enzyme increased [Recovered/Resolved]
  - Nausea [Unknown]

NARRATIVE: CASE EVENT DATE: 20230601
